FAERS Safety Report 5370305-9 (Version None)
Quarter: 2007Q2

REPORT INFORMATION
  Report Type: 
  Country: None (occurrence: None)
  Receive Date: 20070626
  Receipt Date: 20070614
  Transmission Date: 20071010
  Serious: Yes (Hospitalization)
  Sender: FDA-Public Use
  Company Number: FR-ROCHE-495636

PATIENT
  Age: 48 Year
  Sex: Male
  Weight: 76 kg

DRUGS (5)
  1. PEGASYS [Suspect]
     Indication: HEPATITIS C
     Dosage: FORM: INJECTABLE SOLUTION.
     Route: 058
     Dates: start: 20060101, end: 20061201
  2. COPEGUS [Suspect]
     Indication: HEPATITIS C
     Route: 065
     Dates: start: 20060101, end: 20061201
  3. INVIRASE [Suspect]
     Route: 065
     Dates: start: 20000101
  4. NORVIR [Concomitant]
     Route: 065
     Dates: start: 20000101
  5. TRUVADA [Concomitant]
     Route: 065
     Dates: start: 20060101

REACTIONS (1)
  - PULMONARY HYPERTENSION [None]
